FAERS Safety Report 4688345-1 (Version None)
Quarter: 2005Q2

REPORT INFORMATION
  Report Type: 
  Country: None (occurrence: None)
  Receive Date: 20050610
  Receipt Date: 20041020
  Transmission Date: 20051028
  Serious: No
  Sender: FDA-Public Use
  Company Number: JP-MERCK-0410USA03205

PATIENT
  Age: 82 Year
  Sex: Female

DRUGS (11)
  1. FOSAMAX [Suspect]
     Indication: OSTEOPOROSIS
     Route: 048
     Dates: start: 20040804, end: 20040809
  2. LOSARTAN POTASSIUM [Concomitant]
     Indication: HYPERTENSION
     Route: 048
     Dates: start: 20030908
  3. NORVASC [Concomitant]
     Indication: HYPERTENSION
     Route: 048
     Dates: start: 20030908
  4. LASIX [Concomitant]
     Indication: HYPERTENSION
     Route: 048
     Dates: start: 20030908
  5. TOLEDOMIN [Concomitant]
     Indication: ANXIETY DISORDER
     Route: 048
     Dates: start: 20030908
  6. GLUCOBAY [Concomitant]
     Route: 048
  7. LOXONIN [Concomitant]
     Route: 048
  8. SOLON [Concomitant]
     Route: 048
  9. RIDAURA [Concomitant]
     Route: 048
  10. PREDNISOLONE [Concomitant]
     Route: 048
  11. AZULFIDINE EN-TABS [Suspect]
     Route: 048

REACTIONS (2)
  - GENERALISED ERYTHEMA [None]
  - TOXIC SKIN ERUPTION [None]
